FAERS Safety Report 7899875-3 (Version None)
Quarter: 2011Q4

REPORT INFORMATION
  Report Type: 
  Country: None (occurrence: None)
  Receive Date: 20111107
  Receipt Date: 20111003
  Transmission Date: 20120403
  Serious: No
  Sender: FDA-Public Use
  Company Number: US-AMGEN-USASP2011014604

PATIENT
  Age: 52 Year
  Sex: Female

DRUGS (1)
  1. ENBREL [Suspect]
     Indication: RHEUMATOID ARTHRITIS
     Dosage: 50 MG, QWK
     Dates: start: 20100701

REACTIONS (9)
  - IMPAIRED HEALING [None]
  - GRIP STRENGTH DECREASED [None]
  - CARPAL TUNNEL SYNDROME [None]
  - RHEUMATOID ARTHRITIS [None]
  - HEADACHE [None]
  - SINUSITIS [None]
  - TINEA PEDIS [None]
  - RASH PAPULAR [None]
  - HYPOAESTHESIA [None]
